FAERS Safety Report 8296687-6 (Version None)
Quarter: 2012Q2

REPORT INFORMATION
  Report Type: 
  Country: None (occurrence: None)
  Receive Date: 20120418
  Receipt Date: 20120406
  Transmission Date: 20120825
  Serious: Yes (Other)
  Sender: FDA-Public Use
  Company Number: JP-BAXTER-2009BH003537

PATIENT
  Sex: Male
  Weight: 10 kg

DRUGS (7)
  1. ADVATE [Suspect]
     Route: 042
     Dates: start: 20080807, end: 20080815
  2. ADVATE [Suspect]
     Route: 042
     Dates: start: 20081206, end: 20081210
  3. ADVATE [Suspect]
     Route: 042
     Dates: start: 20090101, end: 20090220
  4. ADVATE [Suspect]
     Route: 042
     Dates: start: 20080807, end: 20080815
  5. ADVATE [Suspect]
     Route: 042
     Dates: start: 20080908, end: 20080913
  6. ADVATE [Suspect]
     Route: 042
     Dates: start: 20080908, end: 20080913
  7. ADVATE [Suspect]
     Route: 042
     Dates: start: 20080417

REACTIONS (1)
  - FACTOR VIII INHIBITION [None]
